FAERS Safety Report 19813964 (Version 2)
Quarter: 2021Q4

REPORT INFORMATION
  Report Type: Spontaneous
  Country: DE (occurrence: DE)
  Receive Date: 20210910
  Receipt Date: 20211109
  Transmission Date: 20220303
  Serious: Yes (Other)
  Sender: FDA-Public Use
  Company Number: DE-NOVARTISPH-NVSC2021DE201878

PATIENT
  Age: 76 Year
  Sex: Female
  Weight: 93.6 kg

DRUGS (2)
  1. FULVESTRANT [Suspect]
     Active Substance: FULVESTRANT
     Indication: Hormone receptor positive breast cancer
     Dosage: 500 MG, Q4W(500MG/ 2 X 250MG)
     Route: 030
     Dates: start: 20201125
  2. FULVESTRANT [Suspect]
     Active Substance: FULVESTRANT
     Indication: Breast cancer metastatic
     Dosage: 500 MG, Q4W(500MG/ 2 X 250MG)
     Route: 030
     Dates: start: 20210506

REACTIONS (2)
  - Pneumonia [Recovered/Resolved]
  - Tumour pain [Not Recovered/Not Resolved]

NARRATIVE: CASE EVENT DATE: 20201206
